FAERS Safety Report 8112098-8 (Version None)
Quarter: 2011Q4

REPORT INFORMATION
  Report Type: 
  Country: None (occurrence: None)
  Receive Date: 20111223
  Receipt Date: 20101104
  Transmission Date: 20120403
  Serious: Yes (Disabling)
  Sender: FDA-Public Use
  Company Number: PHHY2010US74658

PATIENT
  Age: 88 Year
  Sex: Female

DRUGS (1)
  1. FEMARA [Suspect]
     Dosage: 2.5 MG, QD, ORAL ; 2.5 MG EVERY OTHER DAY, ORAL
     Route: 048
     Dates: start: 20080101

REACTIONS (6)
  - ASTHENIA [None]
  - PAIN [None]
  - FALL [None]
  - DECREASED APPETITE [None]
  - RIB FRACTURE [None]
  - ABASIA [None]
